FAERS Safety Report 8513040-8 (Version None)
Quarter: 2012Q3

REPORT INFORMATION
  Report Type: 
  Country: None (occurrence: None)
  Receive Date: 20120716
  Receipt Date: 20120705
  Transmission Date: 20120928
  Serious: Yes (Death, Hospitalization)
  Sender: FDA-Public Use
  Company Number: PL-BAXTER-2012BAX009271

PATIENT
  Age: 75 Year
  Sex: Male

DRUGS (3)
  1. DIANEAL LOW CALCIUM W/ DEXTROSE 1.5% [Suspect]
     Route: 033
  2. DIANEAL [Suspect]
     Route: 033
  3. DIANEAL PD-2 W/ DEXTROSE 4.25% [Suspect]
     Route: 033

REACTIONS (4)
  - VOMITING [None]
  - GENERAL PHYSICAL HEALTH DETERIORATION [None]
  - NONINFECTIOUS PERITONITIS [None]
  - PYREXIA [None]
